FAERS Safety Report 12355498 (Version 1)
Quarter: 2016Q2

REPORT INFORMATION
  Report Type: Spontaneous
  Country: US (occurrence: US)
  Receive Date: 20160511
  Receipt Date: 20160511
  Transmission Date: 20160815
  Serious: No
  Sender: FDA-Public Use
  Company Number: US-ENDO PHARMACEUTICALS INC.-2016-001705

PATIENT
  Age: 64 Year
  Sex: Male
  Weight: 58.11 kg

DRUGS (5)
  1. LUTEIN [Concomitant]
     Active Substance: LUTEIN
     Indication: PROPHYLAXIS
  2. ASPIRIN. [Concomitant]
     Active Substance: ASPIRIN
     Indication: CARDIOVASCULAR EVENT PROPHYLAXIS
  3. TAMSULOSIN [Concomitant]
     Active Substance: TAMSULOSIN
     Indication: POLLAKIURIA
  4. XIAFLEX [Suspect]
     Active Substance: COLLAGENASE CLOSTRIDIUM HISTOLYTICUM
     Indication: PEYRONIE^S DISEASE
     Dosage: 1ST INJECTION ONLY, OF THE FIRST CYCLE IN THE PENIS
     Route: 026
     Dates: start: 20160229
  5. MULTIVITAMIN [Concomitant]
     Active Substance: VITAMINS
     Indication: ROUTINE HEALTH MAINTENANCE

REACTIONS (3)
  - Skin discolouration [Not Recovered/Not Resolved]
  - Penile swelling [Recovering/Resolving]
  - Genital hyperaesthesia [Not Recovered/Not Resolved]

NARRATIVE: CASE EVENT DATE: 20160229
